FAERS Safety Report 15862627 (Version 1)
Quarter: 2019Q1

REPORT INFORMATION
  Report Type: Spontaneous
  Country: US (occurrence: US)
  Receive Date: 20190124
  Receipt Date: 20190124
  Transmission Date: 20190417
  Serious: No
  Sender: FDA-Public Use
  Company Number: None

PATIENT
  Age: 33 Year
  Sex: Female
  Weight: 60.75 kg

DRUGS (4)
  1. ACETAMINOPHEN. [Concomitant]
     Active Substance: ACETAMINOPHEN
  2. DYSUM [Concomitant]
  3. AZITHROMYCIN TABLETS, USP [Suspect]
     Active Substance: AZITHROMYCIN
     Indication: EAR INFECTION
     Dosage: ?          QUANTITY:1 TABLET(S);?
     Route: 048
     Dates: start: 20190122, end: 20190124
  4. IBUPROFEN. [Concomitant]
     Active Substance: IBUPROFEN

REACTIONS (2)
  - Hallucination, auditory [None]
  - Hallucination, visual [None]

NARRATIVE: CASE EVENT DATE: 20190123
